FAERS Safety Report 13910668 (Version 1)
Quarter: 2017Q3

REPORT INFORMATION
  Report Type: Spontaneous
  Country: US (occurrence: US)
  Receive Date: 20170826
  Receipt Date: 20170826
  Transmission Date: 20171127
  Serious: Yes (Other)
  Sender: FDA-Public Use
  Company Number: None

PATIENT
  Age: 33 Year
  Sex: Female
  Weight: 76.5 kg

DRUGS (1)
  1. RISPERIDONE. [Suspect]
     Active Substance: RISPERIDONE
     Indication: BIPOLAR II DISORDER
     Route: 048
     Dates: start: 20170228, end: 20170826

REACTIONS (4)
  - Hypertriglyceridaemia [None]
  - Lactation disorder [None]
  - Amenorrhoea [None]
  - Weight increased [None]

NARRATIVE: CASE EVENT DATE: 20170222
